FAERS Safety Report 6622778-9 (Version None)
Quarter: 2010Q1

REPORT INFORMATION
  Report Type: 
  Country: None (occurrence: None)
  Receive Date: 20100310
  Receipt Date: 20100302
  Transmission Date: 20100710
  Serious: Yes (Other)
  Sender: FDA-Public Use
  Company Number: CA-ASTRAZENECA-2010SE07505

PATIENT
  Sex: Female

DRUGS (11)
  1. ATACAND [Suspect]
     Indication: HYPERTENSION
     Route: 048
     Dates: start: 20000101
  2. ATACAND [Suspect]
     Route: 048
     Dates: start: 20100101
  3. ATACAND [Suspect]
     Route: 048
  4. HYDRA-ZIDE [Concomitant]
     Indication: BLOOD PRESSURE
     Route: 048
     Dates: start: 20000101
  5. VITAMINS [Concomitant]
  6. GINKGO BILOBA [Concomitant]
  7. VITAMIN C [Concomitant]
  8. CALCIUM + VITAMIN D [Concomitant]
  9. EVENING OF PRIMROSE OIL [Concomitant]
  10. B6 AMPULES [Concomitant]
  11. OMEGA 3/6/9 [Concomitant]

REACTIONS (4)
  - DIZZINESS [None]
  - DRUG INEFFECTIVE [None]
  - HYPERTENSION [None]
  - NAUSEA [None]
